FAERS Safety Report 13491240 (Version 1)
Quarter: 2017Q2

REPORT INFORMATION
  Report Type: Spontaneous
  Country: FR (occurrence: FR)
  Receive Date: 20170427
  Receipt Date: 20170427
  Transmission Date: 20170830
  Serious: Yes (Hospitalization, Other)
  Sender: FDA-Public Use
  Company Number: FR-ASTRAZENECA-2017SE42201

PATIENT
  Age: 73 Year
  Sex: Female

DRUGS (8)
  1. KARDEGIC [Concomitant]
     Active Substance: ASPIRIN LYSINE
     Dosage: 75MG AT NOON
  2. BIPRETERAX [Concomitant]
     Active Substance: INDAPAMIDE\PERINDOPRIL
     Dosage: 5MG/1.25MG ONCE AT MORNING
  3. CARBOSYLANE [Suspect]
     Active Substance: ACTIVATED CHARCOAL\DIMETHICONE
     Indication: DYSPEPSIA
     Route: 048
     Dates: start: 20161101, end: 20161106
  4. PRADAXA [Suspect]
     Active Substance: DABIGATRAN ETEXILATE MESYLATE
     Indication: ATRIAL FIBRILLATION
     Route: 048
  5. TAHOR [Concomitant]
     Active Substance: ATORVASTATIN CALCIUM
     Dosage: 10MG ONCE AT EVENING
  6. INEXIUM [Suspect]
     Active Substance: ESOMEPRAZOLE
     Dosage: 40MG AT EVENING
     Route: 048
     Dates: start: 201610
  7. BISOPROLOL HEMIFUMARATE [Concomitant]
     Active Substance: BISOPROLOL FUMARATE
     Route: 048
  8. SR FLECAINE [Concomitant]
     Dosage: 100MG AT NOON
     Route: 048

REACTIONS (2)
  - Ischaemic stroke [Recovered/Resolved]
  - Atrial thrombosis [Recovering/Resolving]

NARRATIVE: CASE EVENT DATE: 20161106
